FAERS Safety Report 7599195-0 (Version None)
Quarter: 2011Q3

REPORT INFORMATION
  Report Type: 
  Country: None (occurrence: None)
  Receive Date: 20110711
  Receipt Date: 20110704
  Transmission Date: 20111222
  Serious: Yes (Other)
  Sender: FDA-Public Use
  Company Number: KR-BAYER-2011-015774

PATIENT
  Age: 42 Year
  Sex: Female
  Weight: 90 kg

DRUGS (1)
  1. YASMIN [Suspect]
     Indication: AMENORRHOEA
     Dosage: UNK
     Route: 048
     Dates: start: 20100901

REACTIONS (7)
  - OBSESSIVE-COMPULSIVE DISORDER [None]
  - AMENORRHOEA [None]
  - DEPRESSED MOOD [None]
  - DEPRESSION [None]
  - MENSTRUATION DELAYED [None]
  - WEIGHT DECREASED [None]
  - GLUCOSE TOLERANCE IMPAIRED [None]
